FAERS Safety Report 5213686-9 (Version None)
Quarter: 2007Q1

REPORT INFORMATION
  Report Type: 
  Country: None (occurrence: None)
  Receive Date: 20070119
  Receipt Date: 20070109
  Transmission Date: 20070707
  Serious: Yes (Other)
  Sender: FDA-Public Use
  Company Number: US-PFIZER INC-2007003486

PATIENT
  Sex: Female
  Weight: 50.3 kg

DRUGS (3)
  1. DETROL LA [Suspect]
     Indication: HYPERTONIC BLADDER
     Dates: start: 20070101, end: 20070102
  2. AVALIDE [Concomitant]
  3. ZETIA [Concomitant]

REACTIONS (4)
  - DRY MOUTH [None]
  - DYSPHAGIA [None]
  - PHARYNGEAL OEDEMA [None]
  - SWOLLEN TONGUE [None]
